FAERS Safety Report 4553441-6 (Version None)
Quarter: 2005Q1

REPORT INFORMATION
  Report Type: 
  Country: None (occurrence: None)
  Receive Date: 20050112
  Receipt Date: 20050107
  Transmission Date: 20050727
  Serious: Yes (Other)
  Sender: FDA-Public Use
  Company Number: KII-2005-0014539

PATIENT
  Age: 23 Year
  Sex: Male

DRUGS (2)
  1. OXYCONTIN [Suspect]
     Dosage: PARENTERAL
     Route: 051
  2. BENZODIAZEPINE DERIVATES [Suspect]

REACTIONS (2)
  - COMA [None]
  - DRUG ABUSER [None]
